FAERS Safety Report 17224535 (Version 1)
Quarter: 2020Q1

REPORT INFORMATION
  Report Type: Spontaneous
  Country: US (occurrence: US)
  Receive Date: 20191230
  Receipt Date: 20191230
  Transmission Date: 20200409
  Serious: Yes (Other)
  Sender: FDA-Public Use
  Company Number: None

PATIENT
  Age: 25 Year
  Sex: Female
  Weight: 130.5 kg

DRUGS (3)
  1. FISH OIL WITH OMEGA 3 FATTY ACIDS [Concomitant]
  2. THE HEALTHY FOUNDATION (OCTINOXATE) [Suspect]
     Active Substance: OCTINOXATE
     Indication: PRODUCT USED FOR UNKNOWN INDICATION
     Route: 061
     Dates: start: 20191223, end: 20191224
  3. TOPAMAX [Concomitant]
     Active Substance: TOPIRAMATE

REACTIONS (6)
  - Lip swelling [None]
  - Chemical burn of skin [None]
  - Pain of skin [None]
  - Chemical peel of skin [None]
  - Dyskinesia [None]
  - Dermatitis contact [None]

NARRATIVE: CASE EVENT DATE: 20191223
